FAERS Safety Report 10932593 (Version 1)
Quarter: 2015Q1

REPORT INFORMATION
  Report Type: Spontaneous
  Country: US (occurrence: None)
  Receive Date: 20150319
  Receipt Date: 20150319
  Transmission Date: 20150721
  Serious: No
  Sender: FDA-Public Use
  Company Number: None

PATIENT
  Age: 26 Year
  Sex: Male
  Weight: 70.31 kg

DRUGS (2)
  1. PANTOPRAZOLE [Concomitant]
     Active Substance: PANTOPRAZOLE SODIUM
  2. ORAL ANALGESIC GEL BENZOCAINE 20% 20% IODENT [Suspect]
     Active Substance: BENZOCAINE
     Indication: APHTHOUS STOMATITIS
     Dates: start: 20150317, end: 20150317

REACTIONS (4)
  - Dizziness [None]
  - Accidental overdose [None]
  - Vision blurred [None]
  - Product packaging issue [None]

NARRATIVE: CASE EVENT DATE: 20150317
